FAERS Safety Report 16886985 (Version 2)
Quarter: 2019Q4

REPORT INFORMATION
  Report Type: Spontaneous
  Country: CN (occurrence: CN)
  Receive Date: 20191004
  Receipt Date: 20191023
  Transmission Date: 20200122
  Serious: Yes (Other)
  Sender: FDA-Public Use
  Company Number: CN-009507513-1909CHN015045

PATIENT
  Age: 79 Year
  Sex: Female
  Weight: 45 kg

DRUGS (2)
  1. TIENAM [Suspect]
     Active Substance: CILASTATIN SODIUM\IMIPENEM
     Indication: SEPSIS
     Dosage: 1 GRAM, Q12H
     Dates: start: 20190907, end: 20190911
  2. SODIUM CHLORIDE. [Concomitant]
     Active Substance: SODIUM CHLORIDE
     Indication: MENSTRUAL DISORDER
     Dosage: 50 MILLILITER, Q12H
     Dates: start: 20190907, end: 20190911

REACTIONS (3)
  - Muscle twitching [Recovering/Resolving]
  - Condition aggravated [Unknown]
  - Epilepsy [Recovering/Resolving]

NARRATIVE: CASE EVENT DATE: 20190910
